FAERS Safety Report 7099630-0 (Version None)
Quarter: 2010Q4

REPORT INFORMATION
  Report Type: 
  Country: None (occurrence: None)
  Receive Date: 20101112
  Receipt Date: 20101104
  Transmission Date: 20110411
  Serious: Yes (Death, Hospitalization)
  Sender: FDA-Public Use
  Company Number: US-SANOFI-AVENTIS-2010SA067661

PATIENT
  Age: 47 Year
  Sex: Male

DRUGS (7)
  1. JEVTANA KIT [Suspect]
     Indication: PROSTATE CANCER METASTATIC
     Route: 041
     Dates: start: 20100924, end: 20100924
  2. JEVTANA KIT [Suspect]
     Route: 041
     Dates: start: 20101018, end: 20101018
  3. OXYCONTIN [Concomitant]
     Route: 065
  4. OXYCODONE HCL [Concomitant]
     Route: 065
  5. AZOR [Concomitant]
     Dosage: 5/20 MG
     Route: 065
  6. AMBIEN [Concomitant]
     Route: 048
  7. FESOTERODINE [Concomitant]
     Route: 065

REACTIONS (6)
  - CLOSTRIDIUM DIFFICILE COLITIS [None]
  - DEATH [None]
  - DIARRHOEA [None]
  - HYPOTENSION [None]
  - HYPOVOLAEMIA [None]
  - NEUTROPENIA [None]
